FAERS Safety Report 22032774 (Version 1)
Quarter: 2023Q1

REPORT INFORMATION
  Report Type: Spontaneous
  Country: GB (occurrence: GB)
  Receive Date: 20230224
  Receipt Date: 20230224
  Transmission Date: 20230418
  Serious: Yes (Death)
  Sender: FDA-Public Use
  Company Number: GB-CATALYST PHARMACEUTICALS, INC-GB-CATA-23-00102

PATIENT
  Age: 73 Year
  Sex: Male

DRUGS (1)
  1. FIRDAPSE [Suspect]
     Active Substance: AMIFAMPRIDINE PHOSPHATE
     Indication: Myasthenic syndrome
     Dosage: 20 MILLIGRAM, Q6H
     Route: 048
     Dates: start: 20100826

REACTIONS (1)
  - Death [Fatal]

NARRATIVE: CASE EVENT DATE: 20220702
